FAERS Safety Report 7825257-6 (Version None)
Quarter: 2011Q4

REPORT INFORMATION
  Report Type: 
  Country: None (occurrence: None)
  Receive Date: 20111019
  Receipt Date: 20111009
  Transmission Date: 20120403
  Serious: Yes (Death, Hospitalization)
  Sender: FDA-Public Use
  Company Number: US-GLAXOSMITHKLINE-A0938434A

PATIENT
  Age: 61 Year
  Sex: Female

DRUGS (7)
  1. VOTRIENT [Suspect]
     Indication: LUNG NEOPLASM MALIGNANT
     Dosage: 400MG PER DAY
     Route: 048
     Dates: start: 20110620
  2. NORVASC [Concomitant]
  3. METOPROLOL TARTRATE [Concomitant]
  4. SULFAMETHOXAZOLE [Concomitant]
  5. MEGESTROL ACETATE [Concomitant]
  6. LANSOPRAZOLE [Concomitant]
  7. FRAGMIN [Concomitant]

REACTIONS (9)
  - DRUG INTOLERANCE [None]
  - OFF LABEL USE [None]
  - HYPOAESTHESIA [None]
  - CEREBROVASCULAR ACCIDENT [None]
  - TACHYCARDIA [None]
  - RED BLOOD CELL COUNT DECREASED [None]
  - DYSPNOEA [None]
  - DEATH [None]
  - MONOPLEGIA [None]
